FAERS Safety Report 14418704 (Version 4)
Quarter: 2018Q3

REPORT INFORMATION
  Report Type: Spontaneous
  Country: DE (occurrence: DE)
  Receive Date: 20180122
  Receipt Date: 20180925
  Transmission Date: 20181010
  Serious: Yes (Hospitalization)
  Sender: FDA-Public Use
  Company Number: DE-TEVA-2018-DE-848219

PATIENT
  Age: 57 Year
  Sex: Female
  Weight: 46 kg

DRUGS (9)
  1. CYTARABINE HYDROCHLORIDE 100MG/5ML SDV + 500MG/10ML SDV [Suspect]
     Active Substance: CYTARABINE HYDROCHLORIDE
     Indication: PRODUCT USED FOR UNKNOWN INDICATION
     Dosage: 5800 MILLIGRAM DAILY; DAILY DOSE: 5800 MG MILLIGRAM(S) EVERY DAY
     Route: 065
     Dates: start: 20160507, end: 20160507
  2. DEXAMETHASONE. [Suspect]
     Active Substance: DEXAMETHASONE
     Indication: PRODUCT USED FOR UNKNOWN INDICATION
     Dosage: 40 MG
     Route: 065
     Dates: start: 20160506, end: 20160509
  3. CYTARABINE HYDROCHLORIDE 100MG/5ML SDV + 500MG/10ML SDV [Suspect]
     Active Substance: CYTARABINE HYDROCHLORIDE
     Indication: DIFFUSE LARGE B-CELL LYMPHOMA
     Dosage: 5800 MILLIGRAM DAILY; DAILY DOSE: 5800 MG MILLIGRAM(S) EVERY DAY 5800 MG = 2X 2900 MG
     Route: 065
  4. DEXAMETHASONE. [Suspect]
     Active Substance: DEXAMETHASONE
     Indication: DIFFUSE LARGE B-CELL LYMPHOMA
  5. TEMSIROLIMUS [Suspect]
     Active Substance: TEMSIROLIMUS
     Indication: PRODUCT USED FOR UNKNOWN INDICATION
     Dosage: 25 MG/INFUSION CYCLIC AT D1 AND D8
     Route: 065
     Dates: start: 20160504
  6. CISPLATIN. [Suspect]
     Active Substance: CISPLATIN
     Indication: PRODUCT USED FOR UNKNOWN INDICATION
     Dosage: 145MG
     Route: 065
     Dates: start: 20160506, end: 20160506
  7. CISPLATIN. [Suspect]
     Active Substance: CISPLATIN
     Indication: DIFFUSE LARGE B-CELL LYMPHOMA
  8. TEMSIROLIMUS [Suspect]
     Active Substance: TEMSIROLIMUS
     Indication: DIFFUSE LARGE B-CELL LYMPHOMA
  9. RITUXIMAB. [Suspect]
     Active Substance: RITUXIMAB
     Indication: PRODUCT USED FOR UNKNOWN INDICATION
     Dosage: 544 MILLIGRAM DAILY;
     Route: 065
     Dates: start: 20160505, end: 20160505

REACTIONS (2)
  - Pneumonia [Unknown]
  - Febrile neutropenia [Recovered/Resolved]

NARRATIVE: CASE EVENT DATE: 201605
